FAERS Safety Report 21209793 (Version 1)
Quarter: 2022Q3

REPORT INFORMATION
  Report Type: Spontaneous
  Country: RU (occurrence: None)
  Receive Date: 20220813
  Receipt Date: 20220813
  Transmission Date: 20221027
  Serious: Yes (Death, Hospitalization, Other)
  Sender: FDA-Public Use
  Company Number: 2022A284188

PATIENT
  Sex: Female

DRUGS (1)
  1. DAPAGLIFLOZIN [Suspect]
     Active Substance: DAPAGLIFLOZIN
     Indication: Cardiac failure chronic
     Route: 048

REACTIONS (6)
  - COVID-19 [Fatal]
  - Pulmonary oedema [Unknown]
  - Oedema [Recovering/Resolving]
  - Dyspnoea [Unknown]
  - Cardiac asthma [Unknown]
  - Drug ineffective [Unknown]
